FAERS Safety Report 6486715-2 (Version None)
Quarter: 2009Q4

REPORT INFORMATION
  Report Type: 
  Country: None (occurrence: None)
  Receive Date: 20091210
  Receipt Date: 20091127
  Transmission Date: 20100525
  Serious: Yes (Other)
  Sender: FDA-Public Use
  Company Number: BR-BAYER-200924940LA

PATIENT
  Age: 42 Year
  Sex: Female

DRUGS (2)
  1. MIRENA [Suspect]
     Indication: UTERINE HAEMORRHAGE
     Dosage: FREQUENCY CONTINUOUS
     Route: 015
     Dates: start: 20090901
  2. BEPANTOL [Concomitant]
     Indication: ADVERSE EVENT
     Route: 061

REACTIONS (9)
  - ABDOMINAL PAIN [None]
  - BACK PAIN [None]
  - BREAST PAIN [None]
  - HEADACHE [None]
  - HOMICIDAL IDEATION [None]
  - IRRITABILITY [None]
  - OEDEMA PERIPHERAL [None]
  - PAIN IN EXTREMITY [None]
  - WEIGHT INCREASED [None]
